FAERS Safety Report 10217475 (Version 1)
Quarter: 2014Q2

REPORT INFORMATION
  Report Type: Spontaneous
  Country: US (occurrence: US)
  Receive Date: 20140604
  Receipt Date: 20140604
  Transmission Date: 20141212
  Serious: No
  Sender: FDA-Public Use
  Company Number: US-ASTRAZENECA-2013SE52003

PATIENT
  Age: 58 Year
  Sex: Female
  Weight: 117.9 kg

DRUGS (4)
  1. VIMOVO [Suspect]
     Indication: OSTEOARTHRITIS
     Dosage: TWO TIMES A DAY
     Route: 048
     Dates: start: 201207, end: 20130615
  2. DIOVAN [Concomitant]
     Indication: HYPERTENSION
     Dosage: DAILY
     Route: 048
     Dates: start: 201201
  3. LEXAPRO [Concomitant]
     Indication: DEPRESSION
     Route: 048
     Dates: start: 2011
  4. PAINKILLERS [Concomitant]

REACTIONS (2)
  - Pain [Not Recovered/Not Resolved]
  - Drug dose omission [Unknown]
